FAERS Safety Report 23670241 (Version 1)
Quarter: 2024Q1

REPORT INFORMATION
  Report Type: Spontaneous
  Country: CN (occurrence: CN)
  Receive Date: 20240325
  Receipt Date: 20240325
  Transmission Date: 20240409
  Serious: Yes (Other)
  Sender: FDA-Public Use
  Company Number: CN-BEIGENE-BGN-2024-004177

PATIENT

DRUGS (4)
  1. TISLELIZUMAB [Suspect]
     Active Substance: TISLELIZUMAB
     Indication: Metastases to central nervous system
     Dosage: 200 MILLIGRAM
     Route: 041
     Dates: start: 20240218
  2. PEMETREXED DISODIUM [Concomitant]
     Active Substance: PEMETREXED DISODIUM
     Indication: Metastases to central nervous system
     Dosage: 800 MILLIGRAM
     Route: 041
     Dates: start: 20240218
  3. BEVACIZUMAB [Concomitant]
     Active Substance: BEVACIZUMAB
     Indication: Metastases to central nervous system
     Dosage: 400 MILLIGRAM
     Route: 041
     Dates: start: 20240218
  4. CARBOPLATIN [Concomitant]
     Active Substance: CARBOPLATIN
     Indication: Metastases to central nervous system
     Dosage: UNK
     Dates: start: 20240218

REACTIONS (1)
  - Hepatic function abnormal [Recovering/Resolving]

NARRATIVE: CASE EVENT DATE: 20240311
